FAERS Safety Report 25986029 (Version 1)
Quarter: 2025Q4

REPORT INFORMATION
  Report Type: Spontaneous
  Country: US (occurrence: US)
  Receive Date: 20251102
  Receipt Date: 20251102
  Transmission Date: 20260118
  Serious: No
  Sender: DIFGEN PHARMACEUTICALS LLC
  Company Number: US-Difgen-012210

PATIENT

DRUGS (1)
  1. BUPRENORPHINE HYDROCHLORIDE\NALOXONE HYDROCHLORIDE [Suspect]
     Active Substance: BUPRENORPHINE HYDROCHLORIDE\NALOXONE HYDROCHLORIDE
     Indication: Complex regional pain syndrome
     Route: 060
     Dates: start: 202509

REACTIONS (4)
  - Wrong technique in product usage process [Unknown]
  - Product substitution issue [Unknown]
  - Product size issue [Unknown]
  - Product packaging issue [Unknown]
